FAERS Safety Report 9214078 (Version 1)
Quarter: 2013Q2

REPORT INFORMATION
  Report Type: Spontaneous
  Country: US (occurrence: US)
  Receive Date: 20130405
  Receipt Date: 20130405
  Transmission Date: 20140414
  Serious: Yes (Other)
  Sender: FDA-Public Use
  Company Number: US-JNJFOC-20130318242

PATIENT
  Sex: 0

DRUGS (2)
  1. DURAGESIC [Suspect]
     Indication: NEOPLASM MALIGNANT
     Route: 062
  2. DURAGESIC [Suspect]
     Indication: NEOPLASM MALIGNANT
     Route: 062

REACTIONS (3)
  - Myocardial infarction [Unknown]
  - Infection [Unknown]
  - Surgery [Unknown]
